FAERS Safety Report 5017309-3 (Version None)
Quarter: 2006Q2

REPORT INFORMATION
  Report Type: 
  Country: None (occurrence: None)
  Receive Date: 20060414
  Receipt Date: 20060212
  Transmission Date: 20061013
  Serious: No
  Sender: FDA-Public Use
  Company Number: 2006SP000765

PATIENT
  Age: 67 Year
  Sex: Female
  Weight: 55.7924 kg

DRUGS (11)
  1. LUNESTA [Suspect]
     Indication: INSOMNIA
     Dosage: 2 MG; HS; SEE IMAGE
     Dates: start: 20060201, end: 20060201
  2. LUNESTA [Suspect]
     Indication: INSOMNIA
     Dosage: 2 MG; HS; SEE IMAGE
     Dates: start: 20060209
  3. TOPROL-XL [Concomitant]
  4. PLAVIX [Concomitant]
  5. ASPIRIN [Concomitant]
  6. ALTOPREV [Concomitant]
  7. ZETIA [Concomitant]
  8. CENTRUM SILVER [Concomitant]
  9. CITRACAL [Concomitant]
  10. MAGNESIUM [Concomitant]
  11. Q10 [Concomitant]

REACTIONS (2)
  - DYSGEUSIA [None]
  - INSOMNIA [None]
